FAERS Safety Report 7231732-8 (Version None)
Quarter: 2011Q1

REPORT INFORMATION
  Report Type: 
  Country: None (occurrence: None)
  Receive Date: 20110118
  Receipt Date: 20110115
  Transmission Date: 20110831
  Serious: Yes (Other)
  Sender: FDA-Public Use
  Company Number: US-PFIZER INC-2010125696

PATIENT
  Sex: Female
  Weight: 100 kg

DRUGS (28)
  1. VITAMIN D [Concomitant]
     Dosage: 4000 IU, 1X/DAY
  2. IRON [Concomitant]
     Dosage: 325 MG, 2X/DAY
  3. GABAPENTIN [Concomitant]
     Indication: SCIATICA
     Dosage: 300 MG, AS NEEDED
  4. FUROSEMIDE [Concomitant]
     Dosage: 40 MG, 2X/DAY
  5. PROMETHAZINE [Concomitant]
     Dosage: 25 MG, 3X/DAY
  6. PLAVIX [Concomitant]
     Dosage: 75 MG, UNK
  7. IPRATROPIUM [Concomitant]
     Dosage: 0.5 MG, UNK
  8. CHANTIX [Suspect]
     Indication: SMOKING CESSATION THERAPY
     Dosage: 0.5 MG, 1X/DAY
     Route: 048
     Dates: start: 20100924
  9. CHANTIX [Suspect]
     Dosage: 0.5 MG DAILY
     Route: 048
     Dates: start: 20101001
  10. PREDNISONE [Suspect]
     Indication: PNEUMONIA
     Dosage: 20 MG, 2X/DAY
     Route: 048
     Dates: start: 20110101
  11. NEXIUM [Concomitant]
     Dosage: 40 MG, 2X/DAY
  12. TOPAMAX [Concomitant]
     Dosage: 50 MG, 2X/DAY
  13. ALVESCO [Concomitant]
     Dosage: 160 UG, 2X/DAY
  14. COREG [Concomitant]
     Dosage: 6.25 MG, 2X/DAY
  15. PERCOCET [Concomitant]
     Indication: SURGERY
     Dosage: 7.5/325 MG, 4X/DAY
  16. INSULIN [Concomitant]
     Indication: SHOCK
     Dosage: UNK
  17. POTASSIUM [Concomitant]
     Dosage: 80 MG, 4X/DAY
  18. ALBUTEROL [Concomitant]
     Dosage: 3 MG, UNK
  19. ASPIRIN [Concomitant]
     Dosage: 81 MG, 1X/DAY
  20. FOLIC ACID [Concomitant]
     Dosage: 1 MG, 1X/DAY
  21. NITROGLYCERIN [Concomitant]
     Indication: HEART RATE IRREGULAR
     Dosage: AS NEEDED
  22. ARIXTRA [Concomitant]
     Dosage: 7.5 MG, 1X/DAY
     Route: 058
  23. VITAMIN B-12 [Concomitant]
     Dosage: UNK
  24. MEXILETINE [Concomitant]
     Indication: HEART RATE IRREGULAR
     Dosage: 200 MG, 3X/DAY
  25. COUMADIN [Concomitant]
     Dosage: 12 MG, UNK
  26. AMBIEN [Concomitant]
     Dosage: 50 MG, 1X/DAY
  27. COMBIVENT [Concomitant]
     Dosage: TWO PUFFS FOUR TIMES A DAY
  28. FLOMAX [Concomitant]
     Dosage: 0.4 MG, 1X/DAY

REACTIONS (4)
  - BLOOD PRESSURE INCREASED [None]
  - HEART RATE INCREASED [None]
  - PNEUMONIA [None]
  - BLOOD GLUCOSE INCREASED [None]
